FAERS Safety Report 17604022 (Version 1)
Quarter: 2020Q1

REPORT INFORMATION
  Report Type: Spontaneous
  Country: SE (occurrence: SE)
  Receive Date: 20200331
  Receipt Date: 20200331
  Transmission Date: 20200409
  Serious: Yes (Death)
  Sender: FDA-Public Use
  Company Number: SE-ACCORD-177626

PATIENT
  Age: 39 Year
  Sex: Female

DRUGS (6)
  1. ARIPIPRAZOLE. [Suspect]
     Active Substance: ARIPIPRAZOLE
     Indication: PSYCHOTIC DISORDER
     Dosage: 10 MG / DAY
     Dates: start: 201305
  2. PALIPERIDONE/PALIPERIDONE PALMITATE [Suspect]
     Active Substance: PALIPERIDONE
     Indication: PSYCHOTIC DISORDER
     Dosage: 100 MG / EVERY 4 WEEKS
     Dates: start: 201109, end: 201305
  3. PROPAVAN [Concomitant]
     Active Substance: PROPIOMAZINE
     Dosage: TO THE NIGHT
  4. LEVAXIN [Concomitant]
     Active Substance: LEVOTHYROXINE SODIUM
     Dates: start: 2013
  5. PALIPERIDONE/PALIPERIDONE PALMITATE [Suspect]
     Active Substance: PALIPERIDONE
     Indication: PSYCHOTIC DISORDER
     Dates: start: 201305
  6. THERALEN [Concomitant]
     Active Substance: TRIMEPRAZINE
     Dosage: FOR CERTAIN PERIODS. UNKNOWN THERAPY / DOSING REGIMEN

REACTIONS (1)
  - Cardiomyopathy [Fatal]

NARRATIVE: CASE EVENT DATE: 2019
